FAERS Safety Report 6244325-6 (Version None)
Quarter: 2009Q2

REPORT INFORMATION
  Report Type: 
  Country: None (occurrence: None)
  Receive Date: 20090623
  Receipt Date: 20090615
  Transmission Date: 20091009
  Serious: Yes (Death)
  Sender: FDA-Public Use
  Company Number: GXKR2009CZ06904

PATIENT
  Age: 69 Year
  Sex: Male

DRUGS (11)
  1. DOXORUBICIN HCL [Suspect]
     Indication: LYMPHOMA
     Dosage: 6 CYCLES,
     Dates: start: 20030701
  2. VINCRISTINE [Suspect]
     Indication: LYMPHOMA
     Dosage: 6 CYCLES,
     Dates: start: 20030701
  3. PREDNISONE [Suspect]
     Indication: LYMPHOMA
     Dosage: 6 CYCLES,
     Dates: start: 20030701
  4. FLUDARABINE PHOSPHATE [Suspect]
     Indication: LYMPHOMA
     Dosage: 4 CYCLES, ORAL
     Route: 048
     Dates: start: 20060501
  5. CYCLOPHOSPHAMIDE [Suspect]
     Indication: LYMPHOMA
     Dosage: 6 CYCLES,; 4 CYCLES,
     Dates: start: 20030701
  6. CYCLOPHOSPHAMIDE [Suspect]
     Indication: LYMPHOMA
     Dosage: 6 CYCLES,; 4 CYCLES,
     Dates: start: 20060501
  7. RITUXIMAB (RITUXIMAB) [Suspect]
     Indication: LYMPHOMA
     Dosage: 4 DOSES,; 4 CYCLES,
     Dates: start: 20030701
  8. RITUXIMAB (RITUXIMAB) [Suspect]
     Indication: LYMPHOMA
     Dosage: 4 DOSES,; 4 CYCLES,
     Dates: start: 20050601
  9. RITUXIMAB (RITUXIMAB) [Suspect]
     Indication: LYMPHOMA
     Dosage: 4 DOSES,; 4 CYCLES,
     Dates: start: 20060501
  10. INTERFERON ALFA [Suspect]
     Indication: LYMPHOMA
     Dosage: QW3,; 4 DOSES,
  11. INTERFERON ALFA [Suspect]
     Indication: LYMPHOMA
     Dosage: QW3,; 4 DOSES,
     Dates: start: 20050601

REACTIONS (10)
  - BRONCHOPULMONARY ASPERGILLOSIS [None]
  - CANDIDA PNEUMONIA [None]
  - COMA [None]
  - HEMIPARESIS [None]
  - HUMAN POLYOMAVIRUS INFECTION [None]
  - MULTI-ORGAN FAILURE [None]
  - PROGRESSIVE MULTIFOCAL LEUKOENCEPHALOPATHY [None]
  - PSYCHOTIC DISORDER DUE TO A GENERAL MEDICAL CONDITION [None]
  - QUADRIPLEGIA [None]
  - SEPTIC SHOCK [None]
